FAERS Safety Report 7152297-5 (Version None)
Quarter: 2010Q4

REPORT INFORMATION
  Report Type: 
  Country: None (occurrence: None)
  Receive Date: 20101123
  Receipt Date: 20101116
  Transmission Date: 20110411
  Serious: Yes (Hospitalization, Other)
  Sender: FDA-Public Use
  Company Number: 2010MA004597

PATIENT
  Age: 65 Year
  Sex: Female

DRUGS (3)
  1. LEVETIRACETAM [Suspect]
     Dosage: 750 MG; BID;
  2. DEXAMETHASONE [Concomitant]
  3. MANNITOL [Concomitant]

REACTIONS (11)
  - ALANINE AMINOTRANSFERASE INCREASED [None]
  - BILE DUCT STONE [None]
  - BILIRUBIN CONJUGATED INCREASED [None]
  - BLOOD ALKALINE PHOSPHATASE INCREASED [None]
  - BLOOD BILIRUBIN INCREASED [None]
  - BONE MARROW FAILURE [None]
  - BRONCHOPNEUMONIA [None]
  - ENTEROCOCCUS TEST POSITIVE [None]
  - LIVER ABSCESS [None]
  - PSEUDOMONAS TEST POSITIVE [None]
  - STAPHYLOCOCCUS TEST POSITIVE [None]
